FAERS Safety Report 7960549-1 (Version None)
Quarter: 2011Q4

REPORT INFORMATION
  Report Type: 
  Country: None (occurrence: None)
  Receive Date: 20111206
  Receipt Date: 20111130
  Transmission Date: 20120403
  Serious: Yes (Hospitalization, Other)
  Sender: FDA-Public Use
  Company Number: PHHY2011CH106183

PATIENT
  Age: 56 Year
  Sex: Male
  Weight: 75 kg

DRUGS (2)
  1. GILENYA [Suspect]
     Indication: MULTIPLE SCLEROSIS
     Dosage: 0.5 MG, QD
     Route: 048
     Dates: start: 20110413, end: 20111024
  2. CRESTOR [Concomitant]

REACTIONS (5)
  - LEIOMYOSARCOMA [None]
  - ABDOMINAL DISCOMFORT [None]
  - FIBROSIS [None]
  - HAEMORRHAGE [None]
  - PNEUMONIA [None]
